FAERS Safety Report 22126947 (Version 1)
Quarter: 2023Q1

REPORT INFORMATION
  Report Type: Spontaneous
  Country: US (occurrence: US)
  Receive Date: 20230322
  Receipt Date: 20230322
  Transmission Date: 20230418
  Serious: Yes (Other)
  Sender: FDA-Public Use
  Company Number: US-TEVA-2023-US-2869754

PATIENT
  Sex: Male

DRUGS (1)
  1. CELECOXIB [Suspect]
     Active Substance: CELECOXIB
     Indication: Neuroblastoma
     Dosage: 500 MG/M2 DAILY;
     Route: 065

REACTIONS (3)
  - Gastritis haemorrhagic [Unknown]
  - Haematemesis [Unknown]
  - Pneumonia aspiration [Unknown]
